FAERS Safety Report 14443548 (Version 1)
Quarter: 2018Q1

REPORT INFORMATION
  Report Type: Report from Study
  Country: US (occurrence: US)
  Receive Date: 20180125
  Receipt Date: 20180125
  Transmission Date: 20180509
  Serious: No
  Sender: FDA-Public Use
  Company Number: US-AMGEN-USASL2017188012

PATIENT
  Age: 73 Year
  Sex: Female

DRUGS (1)
  1. KYPROLIS [Suspect]
     Active Substance: CARFILZOMIB
     Indication: PLASMA CELL MYELOMA
     Dosage: DOUBLE DOSE EVERY OTHER WEEK
     Route: 065

REACTIONS (3)
  - Bronchitis [Unknown]
  - Off label use [Unknown]
  - Aphonia [Unknown]

NARRATIVE: CASE EVENT DATE: 201712
